FAERS Safety Report 8356002-6 (Version None)
Quarter: 2012Q2

REPORT INFORMATION
  Report Type: 
  Country: None (occurrence: None)
  Receive Date: 20120514
  Receipt Date: 20120510
  Transmission Date: 20120825
  Serious: Yes (Other)
  Sender: FDA-Public Use
  Company Number: US-PFIZER INC-2012114999

PATIENT
  Sex: Female
  Weight: 67 kg

DRUGS (5)
  1. LEVOTHROID [Concomitant]
     Indication: THYROID DISORDER
     Dosage: UNK
  2. DESMOPRESSIN [Concomitant]
     Indication: BLOOD ANTIDIURETIC HORMONE ABNORMAL
     Dosage: UNK
     Route: 045
  3. GENOTROPIN [Suspect]
     Dosage: 0.4 MG, 1X/DAY
     Route: 058
     Dates: start: 20111201, end: 20120201
  4. GENOTROPIN [Suspect]
     Indication: HYPOPITUITARISM
     Dosage: 0.2 MG, 1X/DAY
     Route: 058
     Dates: start: 20110601, end: 20111201
  5. PREDNISONE [Concomitant]
     Dosage: UNK, 1X/DAY

REACTIONS (2)
  - ARTHRALGIA [None]
  - INSULIN-LIKE GROWTH FACTOR DECREASED [None]
